FAERS Safety Report 10516854 (Version 2)
Quarter: 2014Q4

REPORT INFORMATION
  Report Type: Spontaneous
  Country: ES (occurrence: ES)
  Receive Date: 20141014
  Receipt Date: 20141208
  Transmission Date: 20150528
  Serious: Yes (Hospitalization, Other)
  Sender: FDA-Public Use
  Company Number: PHHY2014ES129441

PATIENT
  Age: 79 Year
  Sex: Female

DRUGS (7)
  1. ESCITALOPRAM [Concomitant]
     Active Substance: ESCITALOPRAM OXALATE
     Indication: PRODUCT USED FOR UNKNOWN INDICATION
     Route: 065
  2. TRAZODONE [Concomitant]
     Active Substance: TRAZODONE HYDROCHLORIDE
     Indication: PRODUCT USED FOR UNKNOWN INDICATION
     Dosage: UNK
     Route: 065
  3. COLECALCIFEROL [Concomitant]
     Active Substance: CHOLECALCIFEROL
     Indication: PRODUCT USED FOR UNKNOWN INDICATION
     Route: 065
  4. OMEPRAZOLE. [Concomitant]
     Active Substance: OMEPRAZOLE
     Indication: PRODUCT USED FOR UNKNOWN INDICATION
     Dosage: UNK
     Route: 065
  5. AMLODIPINE W/OLMESARTAN [Concomitant]
     Indication: PRODUCT USED FOR UNKNOWN INDICATION
     Route: 065
  6. GLIVEC [Suspect]
     Active Substance: IMATINIB MESYLATE
     Indication: CHRONIC MYELOID LEUKAEMIA
     Dosage: 400 MG, QD
     Route: 065
     Dates: start: 200302, end: 201408
  7. CALCIUM CARBONATE. [Concomitant]
     Active Substance: CALCIUM CARBONATE
     Indication: PRODUCT USED FOR UNKNOWN INDICATION
     Route: 065

REACTIONS (34)
  - Adenoma benign [Recovered/Resolved]
  - Mesenteric panniculitis [Unknown]
  - Dysplasia [Unknown]
  - Pulmonary arterial pressure decreased [Unknown]
  - Haemoglobin decreased [Unknown]
  - Serum ferritin increased [Unknown]
  - Cardiac failure acute [Recovered/Resolved]
  - Cardiomegaly [Unknown]
  - Inflammation [Unknown]
  - Decreased appetite [Unknown]
  - Swelling face [Not Recovered/Not Resolved]
  - Oedema [Unknown]
  - Pleural effusion [Recovering/Resolving]
  - Atelectasis [Unknown]
  - Weight decreased [Unknown]
  - Dyspnoea [Unknown]
  - Abdominal distension [Not Recovered/Not Resolved]
  - Peripheral swelling [Not Recovered/Not Resolved]
  - Blood lactate dehydrogenase increased [Unknown]
  - Hepatic cyst [Unknown]
  - Mitral valve sclerosis [Unknown]
  - Aspiration pleural cavity [Unknown]
  - Osteoarthritis [Unknown]
  - Eyelid oedema [Recovering/Resolving]
  - Fatigue [Unknown]
  - Tricuspid valve incompetence [Unknown]
  - Polyp [Unknown]
  - Cholestasis [Unknown]
  - Left ventricular hypertrophy [Not Recovered/Not Resolved]
  - Acute kidney injury [Unknown]
  - Hiatus hernia [Unknown]
  - General physical health deterioration [Unknown]
  - Hypoalbuminaemia [Unknown]
  - Oedema peripheral [Recovered/Resolved]

NARRATIVE: CASE EVENT DATE: 2009
